FAERS Safety Report 14456492 (Version 1)
Quarter: 2018Q1

REPORT INFORMATION
  Report Type: Spontaneous
  Country: JP (occurrence: JP)
  Receive Date: 20180130
  Receipt Date: 20180130
  Transmission Date: 20180509
  Serious: Yes (Other)
  Sender: FDA-Public Use
  Company Number: JP-ACTELION-A-CH2017-154784

PATIENT
  Age: 70 Year
  Sex: Female
  Weight: 51 kg

DRUGS (31)
  1. EPOPROSTENOL SODIUM. [Suspect]
     Active Substance: EPOPROSTENOL SODIUM
     Indication: PULMONARY ARTERIAL HYPERTENSION
     Dosage: UNK
     Route: 042
     Dates: start: 201506
  2. PAXIL [Concomitant]
     Active Substance: PAROXETINE HYDROCHLORIDE
     Dosage: UNK
  3. SODIUM RABEPRAZOLE [Concomitant]
     Active Substance: RABEPRAZOLE SODIUM
     Dosage: UNK
  4. ADEMPAS [Concomitant]
     Active Substance: RIOCIGUAT
     Indication: PULMONARY ARTERIAL HYPERTENSION
     Dosage: UNK
     Dates: start: 20151124
  5. EPOPROSTENOL SODIUM. [Suspect]
     Active Substance: EPOPROSTENOL SODIUM
     Dosage: UNK
     Route: 042
     Dates: start: 20151201
  6. SPIRONOLACTONE. [Concomitant]
     Active Substance: SPIRONOLACTONE
     Dosage: UNK
  7. REMODULIN [Suspect]
     Active Substance: TREPROSTINIL
     Dosage: 48.0 NG/KG, PER MIN
     Route: 058
     Dates: start: 20151126
  8. MORPHINE HYDROCHLORIDE [Suspect]
     Active Substance: MORPHINE HYDROCHLORIDE
     Dosage: 5 MG, TID
     Route: 065
     Dates: start: 20160201
  9. ADCIRCA [Concomitant]
     Active Substance: TADALAFIL
     Indication: PULMONARY ARTERIAL HYPERTENSION
     Dosage: UNK
     Dates: start: 201011
  10. GASTROM [Concomitant]
     Active Substance: ECABET SODIUM
     Dosage: UNK
  11. ALENDRONATE SODIUM HYDRATE [Concomitant]
     Active Substance: ALENDRONATE SODIUM
     Dosage: UNK
  12. WARFARIN [Concomitant]
     Active Substance: WARFARIN
     Dosage: UNK
  13. SILDENAFIL CITRATE. [Concomitant]
     Active Substance: SILDENAFIL CITRATE
  14. TRACLEER [Concomitant]
     Active Substance: BOSENTAN
     Indication: PULMONARY ARTERIAL HYPERTENSION
     Dosage: UNK
     Dates: start: 201004
  15. EPOPROSTENOL SODIUM. [Suspect]
     Active Substance: EPOPROSTENOL SODIUM
     Dosage: 10 NG/KG, PER MIN
     Route: 042
     Dates: start: 20160118
  16. MORPHINE HYDROCHLORIDE [Suspect]
     Active Substance: MORPHINE HYDROCHLORIDE
     Indication: PAIN
     Dosage: 5 MG, UNK
     Route: 065
     Dates: start: 20151204, end: 20151214
  17. CARELOAD [Concomitant]
     Active Substance: BERAPROST SODIUM
     Indication: PULMONARY ARTERIAL HYPERTENSION
     Dosage: UNK
     Dates: start: 20151121
  18. OPSUMIT [Concomitant]
     Active Substance: MACITENTAN
     Route: 048
  19. EPOPROSTENOL SODIUM. [Suspect]
     Active Substance: EPOPROSTENOL SODIUM
     Dosage: 28 NG/KG, PER MIN
     Route: 042
     Dates: start: 20151204
  20. REMODULIN [Suspect]
     Active Substance: TREPROSTINIL
     Dosage: 100 NG/KG, PER MIN
     Route: 058
     Dates: start: 20160118
  21. TRACLEER [Concomitant]
     Active Substance: BOSENTAN
     Indication: PULMONARY ARTERIAL HYPERTENSION
     Dosage: UNK
     Dates: start: 201004
  22. LUPRAC [Concomitant]
     Active Substance: TORSEMIDE
     Dosage: UNK
  23. LEXOTAN [Concomitant]
     Active Substance: BROMAZEPAM
     Dosage: UNK
  24. K-SUPPLY [Concomitant]
     Active Substance: POTASSIUM CHLORIDE
     Dosage: UNK
  25. EPOPROSTENOL SODIUM. [Suspect]
     Active Substance: EPOPROSTENOL SODIUM
     Dosage: 5 NG/KG, PER MIN
     Route: 042
     Dates: start: 20160125, end: 20160201
  26. WYPAX [Concomitant]
     Active Substance: LORAZEPAM
     Dosage: UNK
  27. PREDONINE [Concomitant]
     Active Substance: PREDNISOLONE
     Dosage: UNK
  28. FERROUS SULFATE. [Concomitant]
     Active Substance: FERROUS SULFATE
     Dosage: UNK
  29. REMODULIN [Suspect]
     Active Substance: TREPROSTINIL
     Indication: PULMONARY ARTERIAL HYPERTENSION
     Dosage: UNK
     Route: 058
     Dates: start: 20151028
  30. REMODULIN [Suspect]
     Active Substance: TREPROSTINIL
     Dosage: 120 NG/KG, PER MIN
     Route: 058
     Dates: start: 20160125
  31. CEFZON [Concomitant]
     Active Substance: CEFDINIR
     Dosage: UNK
     Dates: start: 20151204, end: 20151209

REACTIONS (21)
  - Fluid retention [Recovering/Resolving]
  - Right ventricular failure [Recovering/Resolving]
  - Injection site erosion [Recovering/Resolving]
  - Vascular cauterisation [Unknown]
  - Laparoscopic surgery [Unknown]
  - Epistaxis [Recovered/Resolved]
  - Injection site warmth [Recovering/Resolving]
  - Infusion site discharge [Recovering/Resolving]
  - Oxygen saturation decreased [Recovered/Resolved]
  - Concomitant disease aggravated [Recovering/Resolving]
  - Injection site erythema [Not Recovered/Not Resolved]
  - Respiratory depression [Recovered/Resolved]
  - Malaise [Recovering/Resolving]
  - Injection site swelling [Not Recovered/Not Resolved]
  - Injection site induration [Not Recovered/Not Resolved]
  - Oedema peripheral [Recovering/Resolving]
  - Injection site pain [Recovering/Resolving]
  - Pyrexia [Recovering/Resolving]
  - Product leakage [Unknown]
  - Colon cancer [Unknown]
  - Pain [Recovering/Resolving]

NARRATIVE: CASE EVENT DATE: 201511
